FAERS Safety Report 17409365 (Version 1)
Quarter: 2020Q1

REPORT INFORMATION
  Report Type: Spontaneous
  Country: US (occurrence: US)
  Receive Date: 20200212
  Receipt Date: 20200212
  Transmission Date: 20200409
  Serious: Yes (Other)
  Sender: FDA-Public Use
  Company Number: US-PFIZER INC-2020062392

PATIENT

DRUGS (2)
  1. CIALIS [Suspect]
     Active Substance: TADALAFIL
     Dosage: UNK
     Route: 048
     Dates: start: 20110608, end: 20120907
  2. VIAGRA [Suspect]
     Active Substance: SILDENAFIL CITRATE
     Dosage: UNK
     Route: 048
     Dates: start: 20130520, end: 20160512

REACTIONS (1)
  - Malignant melanoma [Unknown]

NARRATIVE: CASE EVENT DATE: 20150401
